FAERS Safety Report 7426185-0 (Version None)
Quarter: 2011Q2

REPORT INFORMATION
  Report Type: 
  Country: None (occurrence: None)
  Receive Date: 20110420
  Receipt Date: 20110418
  Transmission Date: 20111010
  Serious: Yes (Other)
  Sender: FDA-Public Use
  Company Number: PHHO2011EE06852

PATIENT
  Sex: Female

DRUGS (3)
  1. SUNITINIB MALATE [Concomitant]
     Indication: RENAL CELL CARCINOMA
  2. AFINITOR [Suspect]
     Indication: RENAL CELL CARCINOMA
     Dosage: 10 MG, DAILY
     Route: 048
     Dates: start: 20110302, end: 20110322
  3. SORAFENIB [Concomitant]
     Indication: RENAL CELL CARCINOMA

REACTIONS (1)
  - ANGINA PECTORIS [None]
